FAERS Safety Report 5218317-X (Version None)
Quarter: 2006Q4

REPORT INFORMATION
  Report Type: 
  Country: None (occurrence: None)
  Receive Date: 20061130
  Receipt Date: 20060807
  Transmission Date: 20070319
  Serious: Yes (Hospitalization, Other)
  Sender: FDA-Public Use
  Company Number: US200603002664

PATIENT
  Age: 57 Year
  Sex: Female
  Weight: 86.2 kg

DRUGS (1)
  1. ZYPREXA [Suspect]
     Indication: DEPRESSION
     Dosage: 2.5 MG, DAILY (1/D);
     Dates: start: 20000301, end: 20020101

REACTIONS (6)
  - BLOOD CHOLESTEROL ABNORMAL [None]
  - DIABETES MELLITUS NON-INSULIN-DEPENDENT [None]
  - DIABETIC COMA [None]
  - DIABETIC KETOACIDOSIS [None]
  - HYPERTENSION [None]
  - WEIGHT INCREASED [None]
